FAERS Safety Report 20742021 (Version 1)
Quarter: 2022Q2

REPORT INFORMATION
  Report Type: Report from Study
  Country: IT (occurrence: IT)
  Receive Date: 20220423
  Receipt Date: 20220423
  Transmission Date: 20220721
  Serious: Yes (Hospitalization)
  Sender: FDA-Public Use
  Company Number: None

PATIENT
  Age: 65 Year
  Sex: Male

DRUGS (4)
  1. ENALAPRIL [Suspect]
     Active Substance: ENALAPRIL
     Indication: Hypertension
     Dosage: UNIT DOSE : 20 MG , FREQUENCY TIME : 1 DAYS, THERAPY DURATION : 755  DAYS
     Route: 048
     Dates: start: 20200301, end: 20220326
  2. TEGRETOL [Suspect]
     Active Substance: CARBAMAZEPINE
     Indication: Epilepsy
     Dosage: UNIT DOSE : 800 MG , FREQUENCY TIME : 1 DAYS, THERAPY DURATION : 755  DAYS
     Route: 048
     Dates: start: 20200301, end: 20220326
  3. PRIMIDONE [Concomitant]
     Active Substance: PRIMIDONE
  4. NIFEDIPINE [Concomitant]
     Active Substance: NIFEDIPINE
     Dosage: UNIT STRENGTH:30 MG

REACTIONS (2)
  - Hyponatraemia [Recovering/Resolving]
  - Loss of consciousness [Recovering/Resolving]

NARRATIVE: CASE EVENT DATE: 20220326
